FAERS Safety Report 20188973 (Version 1)
Quarter: 2021Q4

REPORT INFORMATION
  Report Type: Spontaneous
  Country: GB (occurrence: GB)
  Receive Date: 20211215
  Receipt Date: 20211215
  Transmission Date: 20220303
  Serious: Yes (Hospitalization, Other)
  Sender: FDA-Public Use
  Company Number: GB-MLMSERVICE-20211125-3237062-1

PATIENT

DRUGS (3)
  1. PREDNISOLONE [Suspect]
     Active Substance: PREDNISOLONE
     Indication: Pulmonary sarcoidosis
     Dosage: UNK UNK, QD, GRADUALLY TAPERING DOSE
     Route: 048
  2. PREDNISOLONE [Suspect]
     Active Substance: PREDNISOLONE
     Indication: Sarcoidosis
     Dosage: 40 MG, QD, DOSE INCREASED
     Route: 048
  3. PREDNISOLONE [Suspect]
     Active Substance: PREDNISOLONE
     Dosage: 30 MG, QD
     Route: 048

REACTIONS (6)
  - Acute kidney injury [Unknown]
  - Human T-cell lymphotropic virus type I infection [Unknown]
  - Strongyloidiasis [Recovered/Resolved]
  - Giardiasis [Recovered/Resolved]
  - Hypotension [Unknown]
  - Strongyloidiasis [Recovered/Resolved]
